FAERS Safety Report 8007537-7 (Version None)
Quarter: 2011Q4

REPORT INFORMATION
  Report Type: 
  Country: None (occurrence: None)
  Receive Date: 20111227
  Receipt Date: 20111216
  Transmission Date: 20120403
  Serious: Yes (Hospitalization)
  Sender: FDA-Public Use
  Company Number: US-BAYER-2011-036939

PATIENT
  Age: 33 Year
  Sex: Female
  Weight: 104 kg

DRUGS (4)
  1. YAZ [Suspect]
     Indication: PREMENSTRUAL SYNDROME
     Dosage: UNK
     Dates: start: 20060815, end: 20070305
  2. IBUPROFEN [Concomitant]
     Dosage: UNK
     Dates: start: 20070129
  3. TRIMETHOBENZAMIDE HCL [Concomitant]
     Dosage: UNK
     Dates: start: 20070216
  4. PENICILLIN [Concomitant]
     Dosage: UNK
     Dates: start: 20070206

REACTIONS (10)
  - DEPRESSION [None]
  - PULMONARY INFARCTION [None]
  - ANXIETY [None]
  - CHEST PAIN [None]
  - WEIGHT INCREASED [None]
  - DYSPNOEA [None]
  - PULMONARY EMBOLISM [None]
  - PAIN IN EXTREMITY [None]
  - PLEURAL EFFUSION [None]
  - MENTAL DISORDER [None]
